FAERS Safety Report 11333555 (Version 1)
Quarter: 2015Q3

REPORT INFORMATION
  Report Type: Spontaneous
  Country: US (occurrence: US)
  Receive Date: 20150803
  Receipt Date: 20150803
  Transmission Date: 20151125
  Serious: Yes (Hospitalization)
  Sender: FDA-Public Use
  Company Number: US-ELI_LILLY_AND_COMPANY-US200803003485

PATIENT
  Age: 45 Year
  Sex: Male
  Weight: 97.05 kg

DRUGS (27)
  1. ABILIFY [Concomitant]
     Active Substance: ARIPIPRAZOLE
     Dosage: 15 MG, DAILY (1/D)
     Dates: start: 20061114
  2. LOPRESSOR [Concomitant]
     Active Substance: METOPROLOL TARTRATE
     Dosage: 50 MG, DAILY (1/D)
     Dates: start: 19980319
  3. ASPIRIN EC [Concomitant]
     Active Substance: ASPIRIN
     Dosage: 5 G, DAILY (1/D)
     Dates: start: 199803
  4. HYDROCHLOROTHIAZIDE. [Concomitant]
     Active Substance: HYDROCHLOROTHIAZIDE
     Dosage: 12.5 MG, DAILY (1/D)
     Dates: start: 20030225
  5. TRICOR [Concomitant]
     Active Substance: FENOFIBRATE
     Dosage: 160 MG, DAILY (1/D)
  6. ZYPREXA [Suspect]
     Active Substance: OLANZAPINE
     Indication: SCHIZOPHRENIA, PARANOID TYPE
     Dosage: 10 MG, EACH MORNING
     Dates: start: 199706, end: 200608
  7. HALDOL [Concomitant]
     Active Substance: HALOPERIDOL
     Dates: start: 199209, end: 199706
  8. LOPRESSOR [Concomitant]
     Active Substance: METOPROLOL TARTRATE
     Dosage: 50 MG, UNK
     Dates: start: 20030225
  9. PROCARDIA XL [Concomitant]
     Active Substance: NIFEDIPINE
     Dosage: 90 MG, DAILY (1/D)
     Dates: start: 20000204
  10. HYDROCHLOROTHIAZIDE. [Concomitant]
     Active Substance: HYDROCHLOROTHIAZIDE
     Dosage: 25 MG, DAILY (1/D)
     Dates: start: 199803
  11. VICODIN [Concomitant]
     Active Substance: ACETAMINOPHEN\HYDROCODONE BITARTRATE
     Dosage: 2 D/F, AS NEEDED
  12. ANDROGEL [Concomitant]
     Active Substance: TESTOSTERONE
     Indication: ERECTILE DYSFUNCTION
     Dosage: UNK, DAILY (1/D)
     Route: 061
     Dates: start: 200610
  13. ZYPREXA ZYDIS [Suspect]
     Active Substance: OLANZAPINE
     Indication: SCHIZOPHRENIA, PARANOID TYPE
     Dosage: 10 MG, DAILY (1/D)
     Dates: start: 20060830, end: 200707
  14. HYDROCHLOROTHIAZIDE. [Concomitant]
     Active Substance: HYDROCHLOROTHIAZIDE
     Dosage: 50 MG, DAILY (1/D)
     Dates: start: 20000204
  15. DIPHENHYDRAMINE. [Concomitant]
     Active Substance: DIPHENHYDRAMINE
     Dosage: 50 MG, EACH EVENING
     Dates: start: 20000204
  16. LOPRESSOR [Concomitant]
     Active Substance: METOPROLOL TARTRATE
     Dosage: 25 MG, 2/D
     Dates: start: 20000204
  17. PROCARDIA XL [Concomitant]
     Active Substance: NIFEDIPINE
     Dosage: 60 MG, UNK
     Dates: start: 199803
  18. LIPITOR [Concomitant]
     Active Substance: ATORVASTATIN CALCIUM
     Dosage: 40 MG, DAILY (1/D)
  19. RISPERDAL [Concomitant]
     Active Substance: RISPERIDONE
     Dates: start: 200002
  20. AVAPRO [Concomitant]
     Active Substance: IRBESARTAN
     Dosage: 150 MG, DAILY (1/D)
  21. FUROSEMIDE. [Concomitant]
     Active Substance: FUROSEMIDE
     Dosage: 40 MG, UNK
  22. FERROUS FUMARATE [Concomitant]
     Active Substance: FERROUS FUMARATE
     Dosage: UNK, DAILY (1/D)
  23. LEVAQUIN [Concomitant]
     Active Substance: LEVOFLOXACIN
     Dosage: 500 MG, EACH EVENING
     Dates: start: 20060830
  24. LOPRESSOR [Concomitant]
     Active Substance: METOPROLOL TARTRATE
     Indication: HYPERTENSION
     Dates: start: 199303
  25. ASPIRIN EC [Concomitant]
     Active Substance: ASPIRIN
     Dosage: 325 MG, DAILY (1/D)
  26. AVALIDE [Concomitant]
     Active Substance: HYDROCHLOROTHIAZIDE\IRBESARTAN
     Dosage: UNK, DAILY (1/D)
  27. COMBIVENT [Concomitant]
     Active Substance: ALBUTEROL SULFATE\IPRATROPIUM BROMIDE
     Dosage: UNK, AS NEEDED
     Route: 055

REACTIONS (4)
  - Pancreatitis [Not Recovered/Not Resolved]
  - Type 2 diabetes mellitus [Unknown]
  - Hyperglycaemia [Unknown]
  - Erectile dysfunction [Unknown]

NARRATIVE: CASE EVENT DATE: 199904
